FAERS Safety Report 8495017-4 (Version None)
Quarter: 2012Q3

REPORT INFORMATION
  Report Type: 
  Country: None (occurrence: None)
  Receive Date: 20120709
  Receipt Date: 20120702
  Transmission Date: 20120928
  Serious: Yes (Hospitalization)
  Sender: FDA-Public Use
  Company Number: PHHY2012FR057231

PATIENT
  Sex: Male

DRUGS (8)
  1. IMOVANE [Concomitant]
  2. AMOXICILLIN [Concomitant]
     Indication: PYREXIA
     Dates: start: 20120103
  3. TEGRETOL [Suspect]
     Dosage: 1 DF DAILY
     Route: 048
     Dates: end: 20120109
  4. NEULEPTIL [Concomitant]
  5. TROPATEPINE [Concomitant]
  6. TERCIAN [Concomitant]
  7. HEPTAMINOL [Concomitant]
  8. HALDOL DECANOATE [Concomitant]

REACTIONS (6)
  - HEPATOMEGALY [None]
  - DECREASED APPETITE [None]
  - LUNG CONSOLIDATION [None]
  - JAUNDICE [None]
  - CHROMATURIA [None]
  - HEPATITIS CHOLESTATIC [None]
